FAERS Safety Report 6570576-7 (Version None)
Quarter: 2010Q1

REPORT INFORMATION
  Report Type: 
  Country: None (occurrence: None)
  Receive Date: 20100204
  Receipt Date: 20100122
  Transmission Date: 20100710
  Serious: Yes (Hospitalization)
  Sender: FDA-Public Use
  Company Number: US-ELI_LILLY_AND_COMPANY-US200803004421

PATIENT
  Sex: Female
  Weight: 113.38 kg

DRUGS (1)
  1. ZYPREXA [Suspect]
     Dates: start: 19980701

REACTIONS (7)
  - BLOOD CHOLESTEROL ABNORMAL [None]
  - BLOOD TRIGLYCERIDES [None]
  - DIABETIC KETOACIDOSIS [None]
  - HYPERGLYCAEMIA [None]
  - HYPERTENSION [None]
  - INFECTION [None]
  - TYPE 2 DIABETES MELLITUS [None]
